FAERS Safety Report 6163624-X (Version None)
Quarter: 2009Q2

REPORT INFORMATION
  Report Type: 
  Country: None (occurrence: None)
  Receive Date: 20090422
  Receipt Date: 20090413
  Transmission Date: 20091009
  Serious: Yes (Other)
  Sender: FDA-Public Use
  Company Number: PHHY2009BR14126

PATIENT
  Age: 65 Year
  Sex: Female

DRUGS (1)
  1. GENTEAL (NVO) [Suspect]
     Dosage: UNK
     Dates: start: 20020101

REACTIONS (4)
  - CATARACT [None]
  - CATARACT OPERATION [None]
  - DRY EYE [None]
  - SURGERY [None]
